FAERS Safety Report 7767228-4 (Version None)
Quarter: 2011Q3

REPORT INFORMATION
  Report Type: 
  Country: None (occurrence: None)
  Receive Date: 20110922
  Receipt Date: 20100418
  Transmission Date: 20111222
  Serious: No
  Sender: FDA-Public Use
  Company Number: US-ASTRAZENECA-2008UW12890

PATIENT
  Sex: Female
  Weight: 103.4 kg

DRUGS (16)
  1. LUNESTA [Concomitant]
     Route: 048
     Dates: start: 20050616
  2. ABILIFY [Concomitant]
     Route: 048
     Dates: start: 20051109
  3. PREMARIN [Concomitant]
     Route: 048
     Dates: start: 20051129
  4. SEROQUEL [Suspect]
     Route: 048
     Dates: start: 20050926
  5. FLUOXETINE [Concomitant]
     Dates: start: 20050929
  6. ABILIFY [Concomitant]
     Route: 048
     Dates: start: 20050616
  7. HALOPERIDOL [Concomitant]
     Dates: start: 20070101
  8. PROZAC [Concomitant]
     Route: 048
     Dates: start: 20050616
  9. ZOLOFT [Concomitant]
  10. WELLBUTRIN [Concomitant]
  11. EFFEXOR [Concomitant]
  12. SEROQUEL [Suspect]
     Indication: PSYCHOTIC DISORDER
     Dosage: UP TO 300 MG PER DAY
     Route: 048
     Dates: start: 20030101, end: 20070101
  13. SEROQUEL [Suspect]
     Route: 048
     Dates: start: 20050616
  14. CYMBALTA [Concomitant]
  15. PROVIGIL [Concomitant]
     Route: 048
     Dates: start: 20050616
  16. LUNESTA [Concomitant]
     Dates: start: 20050926

REACTIONS (7)
  - HYPERTENSION [None]
  - MAJOR DEPRESSION [None]
  - OBESITY [None]
  - GLUCOSE TOLERANCE IMPAIRED [None]
  - DEPRESSION [None]
  - TYPE 2 DIABETES MELLITUS [None]
  - HYPERGLYCAEMIA [None]
